FAERS Safety Report 15100886 (Version 2)
Quarter: 2019Q1

REPORT INFORMATION
  Report Type: Spontaneous
  Country: US (occurrence: US)
  Receive Date: 20180703
  Receipt Date: 20190315
  Transmission Date: 20190417
  Serious: Yes (Other)
  Sender: FDA-Public Use
  Company Number: US-PFIZER INC-2018263688

PATIENT
  Age: 57 Year
  Sex: Female
  Weight: 84 kg

DRUGS (2)
  1. IBRANCE [Suspect]
     Active Substance: PALBOCICLIB
     Indication: BREAST CANCER METASTATIC
     Dosage: 100 MG, 1X/DAY
     Route: 048
     Dates: start: 2016, end: 201805
  2. XGEVA [Suspect]
     Active Substance: DENOSUMAB
     Dosage: UNK UNK, MONTHLY (EVERY MONTH)
     Dates: start: 2018

REACTIONS (2)
  - Neoplasm progression [Unknown]
  - Osteonecrosis of jaw [Recovering/Resolving]
